FAERS Safety Report 5026724-3 (Version None)
Quarter: 2006Q2

REPORT INFORMATION
  Report Type: 
  Country: None (occurrence: None)
  Receive Date: 20060615
  Receipt Date: 20060606
  Transmission Date: 20061013
  Serious: Yes (Hospitalization, Disabling)
  Sender: FDA-Public Use
  Company Number: FR-JNJFOC-20060601591

PATIENT
  Age: 74 Year
  Sex: Female

DRUGS (6)
  1. RISPERDAL [Suspect]
     Indication: PSYCHOTIC DISORDER
     Route: 048
  2. ANAFRANIL [Suspect]
     Indication: DRUG USE FOR UNKNOWN INDICATION
     Route: 048
  3. LOXAPAC [Suspect]
     Indication: PSYCHOTIC DISORDER
     Route: 048
  4. OLANZAPINE [Suspect]
     Indication: PSYCHOTIC DISORDER
     Route: 048
  5. ARTANE [Concomitant]
  6. VALSARTAN [Concomitant]
     Indication: ESSENTIAL HYPERTENSION

REACTIONS (2)
  - DIABETES MELLITUS [None]
  - RENAL FAILURE [None]
